FAERS Safety Report 9603576 (Version 1)
Quarter: 2013Q4

REPORT INFORMATION
  Report Type: Spontaneous
  Country: US (occurrence: US)
  Receive Date: 20131007
  Receipt Date: 20131007
  Transmission Date: 20140711
  Serious: No
  Sender: FDA-Public Use
  Company Number: US-PFIZER INC-2013283024

PATIENT
  Sex: Female
  Weight: 49.89 kg

DRUGS (1)
  1. PREMARIN [Suspect]
     Indication: HORMONE REPLACEMENT THERAPY
     Dosage: UNK, THREE OR FOUR TIMES IN A WEEK
     Route: 067
     Dates: end: 201309

REACTIONS (2)
  - Product quality issue [Recovered/Resolved]
  - Vulvovaginal pruritus [Recovered/Resolved]
